FAERS Safety Report 13965442 (Version 1)
Quarter: 2017Q3

REPORT INFORMATION
  Report Type: Spontaneous
  Country: BY (occurrence: BY)
  Receive Date: 20170913
  Receipt Date: 20170913
  Transmission Date: 20171128
  Serious: Yes (Other)
  Sender: FDA-Public Use
  Company Number: BY-JNJFOC-20170906644

PATIENT
  Age: 57 Year
  Sex: Female

DRUGS (13)
  1. BEDAQUILINE [Suspect]
     Active Substance: BEDAQUILINE
     Indication: TUBERCULOSIS
     Route: 048
     Dates: start: 20161101
  2. IMIPENEM AND CILASTATIN [Suspect]
     Active Substance: CILASTATIN SODIUM\IMIPENEM
     Indication: TUBERCULOSIS
     Route: 042
     Dates: start: 20161101
  3. CAPREOMYCIN [Suspect]
     Active Substance: CAPREOMYCIN
     Indication: TUBERCULOSIS
     Route: 042
     Dates: start: 20170508, end: 20170831
  4. CAPREOMYCIN [Suspect]
     Active Substance: CAPREOMYCIN
     Indication: TUBERCULOSIS
     Route: 042
     Dates: start: 20161101
  5. AMOXICILLIN/CLAVULANIC ACID [Suspect]
     Active Substance: AMOXICILLIN\CLAVULANIC ACID
     Indication: TUBERCULOSIS
     Route: 065
     Dates: start: 20161101
  6. PANCREATIN [Concomitant]
     Active Substance: PANCRELIPASE
     Dosage: 300 SOFT TABLET
     Route: 048
     Dates: start: 20161102
  7. CLOFAZIMINE [Suspect]
     Active Substance: CLOFAZIMINE
     Indication: TUBERCULOSIS
     Route: 048
     Dates: start: 20161101
  8. PROTAMINE SULPHATE [Concomitant]
     Active Substance: PROTAMINE SULFATE
     Route: 058
     Dates: start: 20161121
  9. INSULIN [Concomitant]
     Active Substance: INSULIN NOS
     Route: 058
     Dates: start: 20161130
  10. VITAMIN B6 [Concomitant]
     Active Substance: PYRIDOXINE HYDROCHLORIDE
     Route: 048
     Dates: start: 20170207
  11. FAMOTIDIN [Concomitant]
     Dosage: DOSE 40 UNITS NOT PROVIDED
     Route: 048
     Dates: start: 20170207
  12. LINEZOLID. [Suspect]
     Active Substance: LINEZOLID
     Indication: TUBERCULOSIS
     Route: 048
     Dates: start: 20161101
  13. MOXIFLOXACIN. [Suspect]
     Active Substance: MOXIFLOXACIN
     Indication: TUBERCULOSIS
     Route: 048
     Dates: start: 20161101

REACTIONS (2)
  - Treatment noncompliance [Unknown]
  - Creatinine renal clearance decreased [Not Recovered/Not Resolved]

NARRATIVE: CASE EVENT DATE: 201701
